FAERS Safety Report 7071299-0 (Version None)
Quarter: 2010Q4

REPORT INFORMATION
  Report Type: 
  Country: None (occurrence: None)
  Receive Date: 20101027
  Receipt Date: 20101027
  Transmission Date: 20110411
  Serious: No
  Sender: FDA-Public Use
  Company Number: None

PATIENT

DRUGS (1)
  1. FLUMAZENIL [Suspect]
     Dosage: IV BOLUS
     Route: 040

REACTIONS (2)
  - MEDICATION ERROR [None]
  - PRODUCT LABEL ISSUE [None]
